FAERS Safety Report 23586417 (Version 1)
Quarter: 2024Q1

REPORT INFORMATION
  Report Type: Spontaneous
  Country: US (occurrence: US)
  Receive Date: 20240301
  Receipt Date: 20240301
  Transmission Date: 20240410
  Serious: Yes (Hospitalization, Other)
  Sender: FDA-Public Use
  Company Number: US-DRL-USA-LIT/USA/24/0003334

PATIENT
  Age: 74 Year
  Sex: Female

DRUGS (3)
  1. BORTEZOMIB [Suspect]
     Active Substance: BORTEZOMIB
     Indication: Acquired Von Willebrand^s disease
     Dosage: 1.3  MG/M2 ON DAYS 1, 8, 15, AND 22
  2. BORTEZOMIB [Suspect]
     Active Substance: BORTEZOMIB
     Dosage: BORTEZOMIB WAS LOWERED TO 1 MG/M2
  3. DEXAMETHASONE [Concomitant]
     Active Substance: DEXAMETHASONE
     Indication: Plasma cell disorder
     Dosage: 40 MG (BOTH ON DAYS 1, 8, 15, AND 22)

REACTIONS (1)
  - Neuropathy peripheral [Unknown]
